FAERS Safety Report 13594641 (Version 1)
Quarter: 2017Q2

REPORT INFORMATION
  Report Type: Spontaneous
  Country: US (occurrence: US)
  Receive Date: 20170530
  Receipt Date: 20170530
  Transmission Date: 20170830
  Serious: Yes (Other)
  Sender: FDA-Public Use
  Company Number: US-BAUSCH-BL-2017-017570

PATIENT
  Age: 25 Year
  Sex: Female
  Weight: 59.02 kg

DRUGS (1)
  1. RUCONEST [Suspect]
     Active Substance: HUMAN C1-ESTERASE INHIBITOR
     Indication: HEREDITARY ANGIOEDEMA
     Dosage: 2800 IU USE AS NEEDED
     Route: 042
     Dates: start: 201504

REACTIONS (1)
  - Aortic dilatation [Not Recovered/Not Resolved]

NARRATIVE: CASE EVENT DATE: 201504
